FAERS Safety Report 4511721-4 (Version None)
Quarter: 2004Q4

REPORT INFORMATION
  Report Type: 
  Country: None (occurrence: None)
  Receive Date: 20041129
  Receipt Date: 20041115
  Transmission Date: 20050328
  Serious: Yes (Hospitalization)
  Sender: FDA-Public Use
  Company Number: 200414274FR

PATIENT
  Age: 75 Year
  Sex: Female

DRUGS (11)
  1. CORTANCYL [Suspect]
     Route: 048
  2. LASILIX [Suspect]
     Route: 048
  3. IMUREL [Suspect]
     Route: 048
  4. HUMIRA                                  /USA/ [Suspect]
     Route: 058
     Dates: start: 20040201, end: 20040702
  5. ADALATE 20 MG LP [Suspect]
     Route: 048
  6. ASPEGIC 325 [Suspect]
     Route: 048
  7. LEVOTHYROX [Concomitant]
     Route: 048
  8. LIPANTHYL [Concomitant]
     Route: 048
  9. OMEPRAZOLE [Concomitant]
     Route: 048
  10. OROCAL [Concomitant]
     Route: 048
  11. DUPHALAC [Concomitant]
     Route: 048

REACTIONS (5)
  - BRONCHIAL INFECTION [None]
  - CONDITION AGGRAVATED [None]
  - HYPOXIA [None]
  - PULMONARY FIBROSIS [None]
  - SUPERINFECTION [None]
